FAERS Safety Report 5054475-8 (Version None)
Quarter: 2006Q3

REPORT INFORMATION
  Report Type: 
  Country: None (occurrence: None)
  Receive Date: 20060713
  Receipt Date: 20060627
  Transmission Date: 20061208
  Serious: Yes (Hospitalization)
  Sender: FDA-Public Use
  Company Number: 163-21880-06060207

PATIENT
  Age: 77 Year
  Sex: Female

DRUGS (4)
  1. REVLIMID [Suspect]
     Indication: MYELODYSPLASTIC SYNDROME
     Dosage: 10 MG, DAILY, ORAL; 5 MG, DAILY, ORAL
     Route: 048
     Dates: start: 20060303, end: 20060301
  2. REVLIMID [Suspect]
     Indication: MYELODYSPLASTIC SYNDROME
     Dosage: 10 MG, DAILY, ORAL; 5 MG, DAILY, ORAL
     Route: 048
     Dates: start: 20060329, end: 20060501
  3. ARANESP [Concomitant]
  4. NEUPOGEN [Concomitant]

REACTIONS (1)
  - BONE MARROW FAILURE [None]
